FAERS Safety Report 9162860 (Version 1)
Quarter: 2013Q1

REPORT INFORMATION
  Report Type: Spontaneous
  Country: GB (occurrence: GB)
  Receive Date: 20130314
  Receipt Date: 20130314
  Transmission Date: 20140127
  Serious: Yes (Disabling, Other)
  Sender: FDA-Public Use
  Company Number: GB-B.I. PHARMACEUTICALS,INC./RIDGEFIELD-2013-UK-00373UK

PATIENT
  Age: 53 Year
  Sex: Male
  Weight: 95 kg

DRUGS (12)
  1. PERSANTIN [Suspect]
     Dates: start: 20130208
  2. AMLODIPINE [Concomitant]
     Dates: start: 20121026
  3. ASPIRIN [Concomitant]
     Dates: start: 20121026
  4. ATORVASTATIN [Concomitant]
     Dates: start: 20121228
  5. BENDROFLUMETHIAZIDE [Concomitant]
     Dates: start: 20121026
  6. BISOPROLOL [Concomitant]
     Dates: start: 20121026
  7. DOXAZOSIN [Concomitant]
     Dates: start: 20121228
  8. PARACETAMOL [Concomitant]
     Dates: start: 20121204, end: 20121207
  9. PARACETAMOL [Concomitant]
     Dates: start: 20121221, end: 20121224
  10. PARACETAMOL [Concomitant]
     Dates: start: 20121227, end: 20130130
  11. RAMIPRIL [Concomitant]
     Dates: start: 20121026
  12. SIMVASTATIN [Concomitant]
     Dates: start: 20121026

REACTIONS (5)
  - Diarrhoea [Unknown]
  - Headache [Recovered/Resolved]
  - Abdominal pain upper [Recovered/Resolved]
  - Myalgia [Unknown]
  - Malaise [Recovered/Resolved]
